FAERS Safety Report 17810358 (Version 4)
Quarter: 2020Q3

REPORT INFORMATION
  Report Type: Spontaneous
  Country: US (occurrence: US)
  Receive Date: 20200520
  Receipt Date: 20200723
  Transmission Date: 20201102
  Serious: Yes (Hospitalization)
  Sender: FDA-Public Use
  Company Number: US-BIOGEN-2020BI00872114

PATIENT
  Age: 45 Year
  Sex: Male

DRUGS (2)
  1. TYSABRI [Suspect]
     Active Substance: NATALIZUMAB
     Route: 065
     Dates: start: 20190625, end: 20190625
  2. TYSABRI [Suspect]
     Active Substance: NATALIZUMAB
     Indication: MULTIPLE SCLEROSIS
     Route: 065
     Dates: start: 20131008, end: 20170918

REACTIONS (5)
  - Cerebrovascular accident [Recovered/Resolved]
  - Product dose omission issue [Unknown]
  - Memory impairment [Unknown]
  - Visual impairment [Unknown]
  - Dysgraphia [Unknown]

NARRATIVE: CASE EVENT DATE: 20200519
